FAERS Safety Report 13120793 (Version 1)
Quarter: 2017Q1

REPORT INFORMATION
  Report Type: Spontaneous
  Country: US (occurrence: US)
  Receive Date: 20170117
  Receipt Date: 20170117
  Transmission Date: 20170428
  Serious: Yes (Death)
  Sender: FDA-Public Use
  Company Number: PHEH2017US001560

PATIENT
  Age: 54 Year
  Sex: Female

DRUGS (1)
  1. TYKERB [Suspect]
     Active Substance: LAPATINIB DITOSYLATE
     Indication: BREAST NEOPLASM
     Dosage: 1250 MG, QD
     Route: 048
     Dates: start: 20160427

REACTIONS (1)
  - Death [Fatal]

NARRATIVE: CASE EVENT DATE: 20160820
